FAERS Safety Report 9539347 (Version 1)
Quarter: 2013Q3

REPORT INFORMATION
  Report Type: Report from Study
  Country: AR (occurrence: AR)
  Receive Date: 20130920
  Receipt Date: 20130920
  Transmission Date: 20140515
  Serious: Yes (Other)
  Sender: FDA-Public Use
  Company Number: PHHY2013AR104838

PATIENT
  Sex: Female

DRUGS (2)
  1. DIOVAN D [Suspect]
     Indication: HYPERTENSION
     Dosage: 1 DF (80/12.5MG) DAILY
     Route: 048
  2. DIOVAN D [Suspect]
     Dosage: 0.5 DF (80/12.5MG) DAILY

REACTIONS (2)
  - Pneumonia [Recovering/Resolving]
  - Wrong technique in drug usage process [Unknown]
